FAERS Safety Report 8903161 (Version 1)
Quarter: 2012Q4

REPORT INFORMATION
  Report Type: 
  Country: SE (occurrence: SE)
  Receive Date: 20121113
  Receipt Date: 20121113
  Transmission Date: 20130627
  Serious: Yes (Hospitalization)
  Sender: FDA-Public Use
  Company Number: SE-PFIZER INC-2012279060

PATIENT
  Age: 77 Year
  Sex: Female
  Weight: 78.8 kg

DRUGS (12)
  1. GENOTROPIN [Suspect]
     Indication: GROWTH HORMONE DEFICIENCY
     Dosage: 0.1 mg, 1x/day, 7 injections/week
     Route: 058
     Dates: start: 20020205, end: 20031110
  2. SPARKAL [Concomitant]
     Indication: ESSENTIAL HYPERTENSION, UNSPECIFIED
     Dosage: UNK
     Dates: start: 19900101
  3. KLIOGEST ^NOVO INDUSTRI^ [Concomitant]
     Indication: LUTEINISING HORMONE DEFICIENCY
     Dosage: UNK
     Dates: start: 19910101
  4. KLIOGEST ^NOVO INDUSTRI^ [Concomitant]
     Indication: FOLLICLE-STIMULATING HORMONE DEFICIENCY
  5. KLIOGEST ^NOVO INDUSTRI^ [Concomitant]
     Indication: OVARIAN DISORDER
  6. KLIOGEST ^NOVO INDUSTRI^ [Concomitant]
     Indication: HYPOGONADISM
  7. FUROSEMIDE ^SLOVAKOFARMA^ [Concomitant]
     Indication: ESSENTIAL HYPERTENSION, UNSPECIFIED
     Dosage: UNK
     Dates: start: 20011109
  8. EFEXOR [Concomitant]
     Indication: GENERAL SYMPTOM
     Dosage: UNK
     Dates: start: 20020313
  9. LEVAXIN [Concomitant]
     Indication: THYROID DISORDER
     Dosage: UNK
     Dates: start: 20020313
  10. LEVAXIN [Concomitant]
     Indication: PRIMARY HYPOTHYROIDISM
  11. LIPITOR [Concomitant]
     Indication: HYPERLIPIDAEMIA
     Dosage: UNK
     Dates: start: 20020501
  12. RENITEC [Concomitant]
     Indication: ESSENTIAL HYPERTENSION
     Dosage: UNK
     Dates: start: 20020515

REACTIONS (1)
  - Arthropathy [Unknown]
